FAERS Safety Report 10655601 (Version 1)
Quarter: 2014Q4

REPORT INFORMATION
  Report Type: Spontaneous
  Country: US (occurrence: None)
  Receive Date: 20141215
  Receipt Date: 20141215
  Transmission Date: 20150529
  Serious: Yes (Disabling)
  Sender: FDA-Public Use
  Company Number: None

PATIENT
  Age: 84 Year
  Sex: Male
  Weight: 57.61 kg

DRUGS (1)
  1. LUPRON [Suspect]
     Active Substance: LEUPROLIDE ACETATE
     Indication: PROSTATOMEGALY
     Route: 030
     Dates: start: 20140506

REACTIONS (8)
  - Injection site pain [None]
  - Monoplegia [None]
  - Injection site bruising [None]
  - Skin discolouration [None]
  - Impaired driving ability [None]
  - Impaired work ability [None]
  - Injection site hypoaesthesia [None]
  - Peroneal nerve palsy [None]

NARRATIVE: CASE EVENT DATE: 20140506
